FAERS Safety Report 17521739 (Version 2)
Quarter: 2020Q1

REPORT INFORMATION
  Report Type: Spontaneous
  Country: US (occurrence: US)
  Receive Date: 20200310
  Receipt Date: 20200323
  Transmission Date: 20200409
  Serious: Yes (Hospitalization, Other)
  Sender: FDA-Public Use
  Company Number: US-MYLANLABS-2020M1024262

PATIENT
  Sex: Female
  Weight: 127 kg

DRUGS (2)
  1. CLONAZEPAM. [Suspect]
     Active Substance: CLONAZEPAM
     Indication: ANXIETY
     Dosage: 1 DOSAGE FORM, QD (1 TAB/DAY)
  2. CLONAZEPAM. [Suspect]
     Active Substance: CLONAZEPAM
     Dosage: UNK (HALF TO TAKE 0.5 MG DOSAGE TO TAPER OFF THE MEDICATION)

REACTIONS (6)
  - Anxiety [Recovered/Resolved]
  - Wrong technique in product usage process [Unknown]
  - Withdrawal syndrome [Recovered/Resolved]
  - Headache [Recovered/Resolved]
  - Hypertension [Recovered/Resolved]
  - Nightmare [Recovered/Resolved]
